FAERS Safety Report 7434393-8 (Version None)
Quarter: 2011Q2

REPORT INFORMATION
  Report Type: 
  Country: None (occurrence: None)
  Receive Date: 20110425
  Receipt Date: 20110413
  Transmission Date: 20111010
  Serious: Yes (Other)
  Sender: FDA-Public Use
  Company Number: PHEH2010US03472

PATIENT
  Sex: Female

DRUGS (7)
  1. PROAIR HFA [Concomitant]
  2. ADVAIR HFA [Concomitant]
  3. MOBIC [Concomitant]
  4. SINGULAIR [Concomitant]
  5. OMEPRAZOLE [Concomitant]
  6. SPIRIVA [Concomitant]
  7. ZELNORM [Suspect]
     Indication: GASTRIC DISORDER

REACTIONS (6)
  - PALPITATIONS [None]
  - INJURY [None]
  - DYSPNOEA [None]
  - ARRHYTHMIA [None]
  - CHEST PAIN [None]
  - CARDIAC DISORDER [None]
